FAERS Safety Report 6905824-4 (Version None)
Quarter: 2010Q3

REPORT INFORMATION
  Report Type: 
  Country: None (occurrence: None)
  Receive Date: 20100708
  Receipt Date: 20090422
  Transmission Date: 20110219
  Serious: Yes (Other)
  Sender: FDA-Public Use
  Company Number: 2009206342

PATIENT
  Age: 64 Year
  Sex: Female
  Weight: 68.9 kg

DRUGS (10)
  1. CHANTIX [Suspect]
     Indication: SMOKING CESSATION THERAPY
     Dates: start: 20090401
  2. ASPIRIN [Concomitant]
  3. NASONEX [Concomitant]
  4. SERZONE [Concomitant]
  5. VYTORIN [Concomitant]
  6. PLAVIX [Concomitant]
  7. CALCIUM (CALCIUM) [Concomitant]
  8. VITAMIN D [Concomitant]
  9. MAGNESIUM (MAGNESIUM) [Concomitant]
  10. FISH OIL (FISH OIL) [Concomitant]

REACTIONS (5)
  - COGNITIVE DISORDER [None]
  - CRYING [None]
  - DISSOCIATION [None]
  - POOR QUALITY SLEEP [None]
  - THINKING ABNORMAL [None]
